FAERS Safety Report 12072765 (Version 1)
Quarter: 2016Q1

REPORT INFORMATION
  Report Type: Spontaneous
  Country: NL (occurrence: NL)
  Receive Date: 20160212
  Receipt Date: 20160212
  Transmission Date: 20160526
  Serious: Yes (Hospitalization)
  Sender: FDA-Public Use
  Company Number: NL-TEVA-633421ACC

PATIENT
  Age: 72 Year
  Sex: Female
  Weight: 73 kg

DRUGS (11)
  1. OXALIPLATIN. [Suspect]
     Active Substance: OXALIPLATIN
     Indication: RECTAL CANCER
     Dosage: EXTRA INFO: 2ND COURSE, ONE TIME 234 MG
     Route: 042
     Dates: start: 20160126, end: 20160126
  2. ONDANSETRON TABLET 8MG [Concomitant]
     Dosage: 2 DOSAGE FORMS DAILY; ONE DAY TWICE DAILY ONE
     Route: 048
  3. AMLODIPINE TABLET   5MG [Concomitant]
     Dosage: 5 MILLIGRAM DAILY; ONCE DAILY ONE
     Route: 048
  4. OMEPRAZOL CAPSULE MSR 20MG [Concomitant]
     Active Substance: OMEPRAZOLE
     Dosage: 20 MILLIGRAM DAILY; ONCE DAILY ONE
     Route: 048
  5. DEXAMETHASON TABLET  4MG [Concomitant]
     Dosage: 8 MILLIGRAM DAILY; ONCE DAILY TWO
     Route: 048
  6. METOCLOPRAMIDE TABLET 10MG [Concomitant]
     Active Substance: METOCLOPRAMIDE
     Dosage: AS REQUIRED 3 TIMES DAILY ONE
     Route: 048
  7. METOPROLOL TABLET MGA 200MG (SUCCINAAT) [Concomitant]
     Dosage: 200 MILLIGRAM DAILY; ONCE DAILY ONE
     Route: 048
  8. CAPECITABINE TABLET FO 500MG [Concomitant]
     Active Substance: CAPECITABINE
     Dosage: 3600 MILLIGRAM DAILY; TWICE DAILY 1800 MG
     Route: 048
  9. SIMVASTATINE TABLET 20MG [Concomitant]
     Dosage: 20 MILLIGRAM DAILY; ONCE DAILY ONE
     Route: 048
  10. LOSARTAN/HYDROCHLOORTHIAZIDE TABLET 100/12,5MG [Concomitant]
     Dosage: 1 DOSAGE FORMS DAILY; ONCE DAILY ONE
     Route: 048
  11. AVASTIN INFVLST CONC 25MG/ML FLACON  4ML [Concomitant]
     Dosage: 0MG
     Route: 051

REACTIONS (6)
  - Diplopia [Recovered/Resolved]
  - Coordination abnormal [Recovered/Resolved]
  - Speech disorder [Recovered/Resolved]
  - Dizziness [Recovered/Resolved]
  - Ataxia [Recovered/Resolved]
  - Visual acuity reduced [Recovered/Resolved]

NARRATIVE: CASE EVENT DATE: 20160126
